FAERS Safety Report 12952989 (Version 3)
Quarter: 2016Q4

REPORT INFORMATION
  Report Type: Report from Study
  Country: US (occurrence: US)
  Receive Date: 20161117
  Receipt Date: 20161219
  Transmission Date: 20170207
  Serious: Yes (Hospitalization)
  Sender: FDA-Public Use
  Company Number: US-ACTELION-A-NJ2016-138294

PATIENT
  Age: 46 Year
  Sex: Female

DRUGS (5)
  1. VELETRI [Suspect]
     Active Substance: EPOPROSTENOL
     Indication: PULMONARY ARTERIAL HYPERTENSION
     Dosage: 44.3 NG/KG, PER MIN
     Route: 042
     Dates: start: 20150925
  2. VELETRI [Suspect]
     Active Substance: EPOPROSTENOL
     Dosage: 50.3 NG/KG, PER MIN
     Route: 042
     Dates: start: 20161011
  3. OPSUMIT [Suspect]
     Active Substance: MACITENTAN
     Indication: PULMONARY ARTERIAL HYPERTENSION
     Dosage: 10 MG, QD
     Route: 048
     Dates: start: 20140326
  4. REVATIO [Concomitant]
     Active Substance: SILDENAFIL CITRATE
  5. XARELTO [Concomitant]
     Active Substance: RIVAROXABAN

REACTIONS (18)
  - Myalgia [Unknown]
  - Device dislocation [Unknown]
  - Device alarm issue [Unknown]
  - Abdominal distension [Unknown]
  - Fluid retention [Unknown]
  - Pyrexia [Unknown]
  - Haemoglobin decreased [Unknown]
  - Pain in jaw [Unknown]
  - Pulmonary arterial pressure increased [Unknown]
  - Dyspnoea [Unknown]
  - Depression [Unknown]
  - Irritability [Unknown]
  - Chest pain [Unknown]
  - Dyspnoea exertional [Not Recovered/Not Resolved]
  - Cardiac disorder [Unknown]
  - Platelet count decreased [Unknown]
  - Palpitations [Unknown]
  - Thrombosis in device [Unknown]

NARRATIVE: CASE EVENT DATE: 20160723
